FAERS Safety Report 4775128-7 (Version None)
Quarter: 2005Q3

REPORT INFORMATION
  Report Type: 
  Country: None (occurrence: None)
  Receive Date: 20050920
  Receipt Date: 20050909
  Transmission Date: 20060218
  Serious: Yes (Hospitalization, Other)
  Sender: FDA-Public Use
  Company Number: 2005037435

PATIENT
  Sex: Female

DRUGS (1)
  1. ARTHROTEC [Suspect]
     Indication: ARTHRITIS
     Dosage: UNKNOWN
     Route: 065

REACTIONS (4)
  - CARDIAC PACEMAKER INSERTION [None]
  - DRUG EFFECT DECREASED [None]
  - HYPERTENSION [None]
  - PNEUMONIA [None]
